FAERS Safety Report 9323106 (Version 2)
Quarter: 2013Q3

REPORT INFORMATION
  Report Type: Report from Study
  Country: US (occurrence: US)
  Receive Date: 20130603
  Receipt Date: 20130711
  Transmission Date: 20140515
  Serious: Yes (Hospitalization, Other)
  Sender: FDA-Public Use
  Company Number: US-BIOGENIDEC-2013BI046977

PATIENT
  Age: 48 Year
  Sex: Male
  Weight: 97 kg

DRUGS (19)
  1. TYSABRI [Suspect]
     Indication: MULTIPLE SCLEROSIS
     Route: 042
     Dates: start: 20090609, end: 201303
  2. TYSABRI [Suspect]
     Indication: MULTIPLE SCLEROSIS
     Dates: start: 201304
  3. OXCARBAZEPINE [Concomitant]
     Route: 048
  4. NIACIN [Concomitant]
     Route: 048
  5. BACLOFEN [Concomitant]
     Route: 048
  6. LOSARTAN [Concomitant]
     Route: 048
  7. OXYBUTYNIN [Concomitant]
     Route: 048
  8. TIZANIDINE [Concomitant]
     Route: 048
  9. ARIPIPRAZOLE [Concomitant]
     Route: 048
  10. ASPIRIN [Concomitant]
     Route: 048
  11. CHOLECALCIFEROL [Concomitant]
     Route: 048
  12. CITALOPRAM [Concomitant]
     Route: 048
  13. DESIPRAMINE [Concomitant]
     Route: 048
  14. METOPROLOL [Concomitant]
     Route: 048
  15. POLYETHYLENE GLYCOL [Concomitant]
     Route: 048
  16. QUETIAPINE [Concomitant]
     Route: 048
  17. SILDENAFIL [Concomitant]
     Indication: ERECTILE DYSFUNCTION
     Route: 048
  18. SIMVASTATIN [Concomitant]
     Route: 048
  19. TRIAMCINOLONE [Concomitant]
     Route: 061

REACTIONS (1)
  - Clostridium difficile infection [Recovered/Resolved]
